FAERS Safety Report 8480347-2 (Version None)
Quarter: 2012Q3

REPORT INFORMATION
  Report Type: 
  Country: None (occurrence: None)
  Receive Date: 20120701
  Receipt Date: 20120626
  Transmission Date: 20120928
  Serious: Yes (Other)
  Sender: FDA-Public Use
  Company Number: GB-TEVA-345109ISR

PATIENT
  Age: 70 Year
  Sex: Female
  Weight: 86 kg

DRUGS (7)
  1. ALLOPURINOL [Concomitant]
     Dates: start: 20120305
  2. FUROSEMIDE [Concomitant]
     Dates: start: 20120305
  3. RAMIPRIL [Concomitant]
     Dates: start: 20120305
  4. SIMVASTATIN [Suspect]
     Dates: start: 20120305, end: 20120430
  5. ATENOLOL [Concomitant]
     Dates: start: 20120305
  6. LACIDIPINE [Concomitant]
     Dates: start: 20120305
  7. LEVOTHYROXINE [Concomitant]
     Dates: start: 20120224

REACTIONS (1)
  - ANAEMIA HAEMOLYTIC AUTOIMMUNE [None]
